FAERS Safety Report 14057671 (Version 1)
Quarter: 2017Q4

REPORT INFORMATION
  Report Type: Spontaneous
  Country: US (occurrence: US)
  Receive Date: 20171006
  Receipt Date: 20171006
  Transmission Date: 20180321
  Serious: No
  Sender: FDA-Public Use
  Company Number: US-GLAXOSMITHKLINE-US2017150829

PATIENT
  Sex: Male

DRUGS (2)
  1. LOTRIMIN [Suspect]
     Active Substance: CLOTRIMAZOLE
     Indication: TINEA PEDIS
     Dosage: UNK
  2. LAMISIL AT CONTINUOUS SPRAY [Suspect]
     Active Substance: TERBINAFINE HYDROCHLORIDE
     Indication: TINEA PEDIS
     Dosage: UNK UNK, BID, USING THE PRODUCT ABOUT FIVE DAYS, TWICE A DAY
     Dates: start: 20170923

REACTIONS (9)
  - Application site erythema [Unknown]
  - Application site pain [Recovering/Resolving]
  - Hypersensitivity [Unknown]
  - Tinea pedis [Unknown]
  - Inappropriate schedule of drug administration [Unknown]
  - Condition aggravated [Unknown]
  - Drug ineffective [Unknown]
  - Application site rash [Unknown]
  - Application site papules [Unknown]
